FAERS Safety Report 8380708-6 (Version None)
Quarter: 2012Q2

REPORT INFORMATION
  Report Type: 
  Country: None (occurrence: None)
  Receive Date: 20120523
  Receipt Date: 20120521
  Transmission Date: 20120825
  Serious: Yes (Death, Hospitalization)
  Sender: FDA-Public Use
  Company Number: PHHY2012NO040891

PATIENT
  Sex: Male

DRUGS (9)
  1. ISOPTIN [Concomitant]
     Dosage: 240 MG, UNK
     Route: 048
  2. METFORMIN HCL [Suspect]
     Indication: DIABETES MELLITUS
     Dosage: 1 G, TID
     Route: 048
     Dates: start: 20040101
  3. METOPROLOL SUCCINATE [Concomitant]
     Dosage: 150 MG, QD
     Route: 048
  4. WARFARIN SODIUM [Concomitant]
     Indication: ATRIAL FIBRILLATION
     Route: 048
  5. AMARYL [Concomitant]
     Indication: DIABETES MELLITUS
     Dosage: 2 MG, QD
     Route: 048
  6. DIGITOXIN TAB [Concomitant]
     Indication: ATRIAL FIBRILLATION
     Route: 048
  7. RAMIPRIL [Concomitant]
     Route: 048
  8. SIMVASTATIN [Concomitant]
     Dosage: 40 MG, QD
  9. RAMIPRIL [Suspect]

REACTIONS (6)
  - MULTI-ORGAN FAILURE [None]
  - HELICOBACTER GASTRITIS [None]
  - DEHYDRATION [None]
  - DRUG LEVEL INCREASED [None]
  - RENAL FAILURE [None]
  - LACTIC ACIDOSIS [None]
